FAERS Safety Report 16153617 (Version 1)
Quarter: 2019Q2

REPORT INFORMATION
  Report Type: Spontaneous
  Country: GB (occurrence: GB)
  Receive Date: 20190403
  Receipt Date: 20190403
  Transmission Date: 20190711
  Serious: Yes (Hospitalization)
  Sender: FDA-Public Use
  Company Number: GB-ACCORD-116790

PATIENT
  Age: 47 Year
  Sex: Male

DRUGS (9)
  1. ORAMORPH [Concomitant]
     Active Substance: MORPHINE SULFATE
     Dosage: FOUR TIMES A DAY, 10MG/5ML
     Route: 048
  2. COCODAMOL [Concomitant]
     Active Substance: ACETAMINOPHEN\CODEINE PHOSPHATE
     Dosage: FOUR TIMES A DAY, 30MG/500MG
     Route: 048
  3. CARBOPLATIN. [Suspect]
     Active Substance: CARBOPLATIN
     Indication: CHEMOTHERAPY
     Dosage: 450MG/45ML
  4. FLUOROURACIL. [Suspect]
     Active Substance: FLUOROURACIL
     Indication: CHEMOTHERAPY
  5. BISOPROLOL [Concomitant]
     Active Substance: BISOPROLOL
     Dosage: MORNING.
     Route: 048
  6. THIAMINE. [Concomitant]
     Active Substance: THIAMINE
     Dosage: MORNING
     Route: 048
  7. MST CONTINUS [Concomitant]
     Active Substance: MORPHINE SULFATE
     Route: 048
  8. VITAMIN B COMPOUND STRONG [Concomitant]
     Route: 048
  9. PREGABALIN. [Concomitant]
     Active Substance: PREGABALIN
     Route: 048

REACTIONS (2)
  - Neutropenic sepsis [Unknown]
  - Pancytopenia [Recovered/Resolved]
